FAERS Safety Report 8008180-6 (Version None)
Quarter: 2011Q4

REPORT INFORMATION
  Report Type: 
  Country: None (occurrence: None)
  Receive Date: 20111227
  Receipt Date: 20111213
  Transmission Date: 20120403
  Serious: Yes (Other)
  Sender: FDA-Public Use
  Company Number: DE-CELGENEUS-062-21880-11121670

PATIENT
  Age: 70 Year
  Sex: Male

DRUGS (2)
  1. DEXAMETHASONE [Concomitant]
     Indication: PLASMACYTOMA
     Route: 065
     Dates: start: 20110707
  2. REVLIMID [Suspect]
     Indication: PLASMACYTOMA
     Route: 048
     Dates: start: 20110707

REACTIONS (3)
  - RETINAL DETACHMENT [None]
  - VITREOUS HAEMORRHAGE [None]
  - AMAUROSIS FUGAX [None]
